FAERS Safety Report 11770232 (Version 1)
Quarter: 2015Q4

REPORT INFORMATION
  Report Type: Report from Study
  Country: CA (occurrence: CA)
  Receive Date: 20151123
  Receipt Date: 20151123
  Transmission Date: 20160304
  Serious: Yes (Hospitalization)
  Sender: FDA-Public Use
  Company Number: CA-JNJFOC-20151120714

PATIENT
  Age: 57 Year
  Sex: Female
  Weight: 110 kg

DRUGS (13)
  1. AMLODIPINE [Concomitant]
     Active Substance: AMLODIPINE BESYLATE
     Route: 065
  2. CITALOPRAM [Concomitant]
     Active Substance: CITALOPRAM HYDROBROMIDE
     Route: 065
  3. CLONIDINE. [Concomitant]
     Active Substance: CLONIDINE
     Route: 065
  4. SULFASALAZINE. [Concomitant]
     Active Substance: SULFASALAZINE
     Route: 065
  5. PANTOPRAZOLE [Concomitant]
     Active Substance: PANTOPRAZOLE SODIUM
     Route: 065
  6. VITAMIN B [Concomitant]
     Active Substance: VITAMIN B
     Route: 065
  7. FOLIC ACID. [Concomitant]
     Active Substance: FOLIC ACID
     Route: 065
  8. METHOTREXATE [Concomitant]
     Active Substance: METHOTREXATE
     Route: 048
  9. AMITRIPTYLINE [Concomitant]
     Active Substance: AMITRIPTYLINE
     Route: 065
  10. REMICADE [Suspect]
     Active Substance: INFLIXIMAB
     Indication: CROHN^S DISEASE
     Route: 042
     Dates: start: 20141210
  11. VITAMIN D [Concomitant]
     Active Substance: CHOLECALCIFEROL
     Route: 065
  12. SYNTHROID [Concomitant]
     Active Substance: LEVOTHYROXINE SODIUM
     Route: 065
  13. VITAMINE C [Concomitant]
     Route: 065

REACTIONS (4)
  - Constipation [Recovering/Resolving]
  - Fall [Unknown]
  - Pain in extremity [Unknown]
  - Neck surgery [Recovering/Resolving]

NARRATIVE: CASE EVENT DATE: 20151028
